FAERS Safety Report 12145875 (Version 5)
Quarter: 2016Q2

REPORT INFORMATION
  Report Type: Spontaneous
  Country: US (occurrence: US)
  Receive Date: 20160304
  Receipt Date: 20160620
  Transmission Date: 20160815
  Serious: Yes (Hospitalization, Other)
  Sender: FDA-Public Use
  Company Number: US-SHIRE-US201602605

PATIENT
  Age: 53 Year
  Sex: Female
  Weight: 67.57 kg

DRUGS (13)
  1. PROZAC [Suspect]
     Active Substance: FLUOXETINE HYDROCHLORIDE
     Indication: ANXIETY
     Dosage: 20 MG, 1X/DAY:QD
     Route: 048
     Dates: start: 201406
  2. VYVANSE [Suspect]
     Active Substance: LISDEXAMFETAMINE DIMESYLATE
     Indication: ASTHENIA
     Dosage: 40 MG, 1X/DAY:QD
     Route: 048
     Dates: start: 201401, end: 201405
  3. VYVANSE [Suspect]
     Active Substance: LISDEXAMFETAMINE DIMESYLATE
     Dosage: 50 MG, 1X/DAY:QD
     Route: 048
     Dates: start: 201405, end: 201410
  4. RETIN-A [Concomitant]
     Active Substance: TRETINOIN
     Indication: ROSACEA
     Dosage: .4%, 1X/DAY:QD (EVENING)
     Route: 061
  5. MULTIVIT                           /07504101/ [Concomitant]
     Indication: SUPPLEMENTATION THERAPY
     Dosage: UNK, 1X/DAY:QD
     Route: 048
     Dates: start: 1996
  6. VYVANSE [Suspect]
     Active Substance: LISDEXAMFETAMINE DIMESYLATE
     Dosage: 40 MG, 1X/DAY:QD
     Route: 048
     Dates: start: 201503, end: 201504
  7. AZELAIC ACID. [Concomitant]
     Active Substance: AZELAIC ACID
     Indication: ROSACEA
     Dosage: 15 %, 1X/DAY:QD
     Route: 061
  8. VYVANSE [Suspect]
     Active Substance: LISDEXAMFETAMINE DIMESYLATE
     Indication: DISTURBANCE IN ATTENTION
     Dosage: 30 MG, 1X/DAY:QD
     Route: 048
     Dates: start: 201312, end: 201401
  9. VYVANSE [Suspect]
     Active Substance: LISDEXAMFETAMINE DIMESYLATE
     Dosage: 20 MG, 1X/DAY:QD
     Dates: start: 201512, end: 201605
  10. MULTIGEN                           /08081901/ [Concomitant]
     Indication: SERUM FERRITIN DECREASED
     Dosage: 15 MG, 1X/DAY:QD
     Route: 048
  11. VYVANSE [Suspect]
     Active Substance: LISDEXAMFETAMINE DIMESYLATE
     Dosage: 30 MG, 1X/DAY:QD
     Route: 048
     Dates: start: 201503, end: 201503
  12. VYVANSE [Suspect]
     Active Substance: LISDEXAMFETAMINE DIMESYLATE
     Dosage: 30 MG, 1X/DAY:QD
     Route: 048
     Dates: start: 201504, end: 201512
  13. FERRITIN [Concomitant]
     Active Substance: FERRITIN
     Indication: ALOPECIA
     Dosage: UNK, 1X/DAY:QD
     Route: 048
     Dates: start: 2012

REACTIONS (10)
  - Blood pressure increased [Not Recovered/Not Resolved]
  - Anxiety [Not Recovered/Not Resolved]
  - Disturbance in attention [Not Recovered/Not Resolved]
  - Mitral valve prolapse [Recovered/Resolved]
  - Postoperative hernia [Recovered/Resolved]
  - Menstrual disorder [Unknown]
  - Cardiac valve rupture [Recovered/Resolved]
  - Weight increased [Not Recovered/Not Resolved]
  - Glucose tolerance impaired [Not Recovered/Not Resolved]
  - Tachyphrenia [Recovered/Resolved]

NARRATIVE: CASE EVENT DATE: 201401
